FAERS Safety Report 6394159-7 (Version None)
Quarter: 2009Q4

REPORT INFORMATION
  Report Type: 
  Country: None (occurrence: None)
  Receive Date: 20091008
  Receipt Date: 20091005
  Transmission Date: 20100525
  Serious: Yes (Hospitalization)
  Sender: FDA-Public Use
  Company Number: TH-RB-021276-09

PATIENT
  Age: 39 Year
  Sex: Male

DRUGS (2)
  1. BUPRENORPHINE HCL AND NALOXONE HCL [Suspect]
     Dosage: TOOK A TOTAL OF 8 MG
     Route: 060
     Dates: start: 20090916, end: 20090917
  2. BUPRENORPHINE HCL AND NALOXONE HCL [Suspect]
     Dosage: RESTARTED AT 4 MG UNKNOWN FREQUENCY.
     Route: 060
     Dates: start: 20090922

REACTIONS (6)
  - ABDOMINAL PAIN [None]
  - ABDOMINAL PAIN LOWER [None]
  - ABDOMINAL REBOUND TENDERNESS [None]
  - APPENDICITIS [None]
  - NAUSEA [None]
  - WITHDRAWAL SYNDROME [None]
